FAERS Safety Report 20369362 (Version 2)
Quarter: 2022Q1

REPORT INFORMATION
  Report Type: Spontaneous
  Country: RU (occurrence: RU)
  Receive Date: 20220124
  Receipt Date: 20220207
  Transmission Date: 20220424
  Serious: Yes (Other)
  Sender: FDA-Public Use
  Company Number: RU-ASTPRD-AER-2022-000207

PATIENT
  Sex: Male

DRUGS (1)
  1. XTANDI [Suspect]
     Active Substance: ENZALUTAMIDE
     Indication: Prostate cancer
     Route: 048
     Dates: start: 202105, end: 202201

REACTIONS (3)
  - Cardiac failure chronic [Unknown]
  - Tachycardia [Unknown]
  - Supraventricular extrasystoles [Unknown]
